FAERS Safety Report 21123778 (Version 6)
Quarter: 2022Q3

REPORT INFORMATION
  Report Type: Report from Study
  Country: CO (occurrence: CO)
  Receive Date: 20220725
  Receipt Date: 20220831
  Transmission Date: 20221027
  Serious: Yes (Death, Hospitalization)
  Sender: FDA-Public Use
  Company Number: CO-ABBVIE-22K-036-4459152-00

PATIENT
  Sex: Male
  Weight: 55 kg

DRUGS (2)
  1. VENCLEXTA [Suspect]
     Active Substance: VENETOCLAX
     Indication: Acute myeloid leukaemia
     Route: 048
     Dates: start: 20220423, end: 20220701
  2. VENCLEXTA [Suspect]
     Active Substance: VENETOCLAX
     Route: 048
     Dates: start: 202207, end: 20220818

REACTIONS (14)
  - Death [Fatal]
  - Abdominal distension [Recovering/Resolving]
  - Peripheral swelling [Recovering/Resolving]
  - Fluid retention [Not Recovered/Not Resolved]
  - General physical health deterioration [Not Recovered/Not Resolved]
  - Bradycardia [Not Recovered/Not Resolved]
  - Feeding disorder [Not Recovered/Not Resolved]
  - Lip injury [Recovered/Resolved]
  - Malaise [Recovering/Resolving]
  - Blister [Recovering/Resolving]
  - Underweight [Recovering/Resolving]
  - Dizziness [Recovering/Resolving]
  - Asthenia [Recovering/Resolving]
  - Haemoglobin decreased [Recovering/Resolving]

NARRATIVE: CASE EVENT DATE: 20220101
